FAERS Safety Report 4519499-5 (Version None)
Quarter: 2004Q4

REPORT INFORMATION
  Report Type: 
  Country: None (occurrence: None)
  Receive Date: 20041101
  Receipt Date: 20040402
  Transmission Date: 20050328
  Serious: Yes (Other)
  Sender: FDA-Public Use
  Company Number: HQWYE359605APR04

PATIENT
  Age: 69 Year
  Sex: Female
  Weight: 43.13 kg

DRUGS (2)
  1. PREMARIN [Suspect]
     Indication: VULVOVAGINAL DRYNESS
     Dosage: ^SMALLEST DOSE AT THE TIME^, ORAL
     Route: 048
     Dates: start: 19920101
  2. FOSAMAX [Concomitant]

REACTIONS (1)
  - VAGINAL SWELLING [None]
